FAERS Safety Report 24810704 (Version 2)
Quarter: 2025Q1

REPORT INFORMATION
  Report Type: Spontaneous
  Country: US (occurrence: US)
  Receive Date: 20250106
  Receipt Date: 20250306
  Transmission Date: 20250408
  Serious: Yes (Hospitalization, Other)
  Sender: IOVANCE BIOTHERAPEUTICS MANUFACTURING LLC
  Company Number: US-IOVANCE BIOTHERAPEUTICS INC.-IOV2024000057

PATIENT

DRUGS (7)
  1. PROLEUKIN [Suspect]
     Active Substance: ALDESLEUKIN
     Indication: Product used for unknown indication
     Route: 065
     Dates: start: 20241212
  2. PROLEUKIN [Suspect]
     Active Substance: ALDESLEUKIN
     Route: 065
     Dates: start: 20241213
  3. PROLEUKIN [Suspect]
     Active Substance: ALDESLEUKIN
     Route: 065
     Dates: start: 20241215
  4. LIFILEUCEL [Suspect]
     Active Substance: LIFILEUCEL
     Indication: Product used for unknown indication
     Route: 065
     Dates: start: 20241210
  5. CYCLOPHOSPHAMIDE [Suspect]
     Active Substance: CYCLOPHOSPHAMIDE
     Indication: Product used for unknown indication
     Route: 065
     Dates: start: 20241202
  6. CYCLOPHOSPHAMIDE [Suspect]
     Active Substance: CYCLOPHOSPHAMIDE
     Route: 065
     Dates: start: 20241203
  7. FLUDARABINE [Suspect]
     Active Substance: FLUDARABINE PHOSPHATE
     Indication: Product used for unknown indication
     Route: 065
     Dates: start: 20241204, end: 20241208

REACTIONS (4)
  - Cytokine release syndrome [Recovered/Resolved]
  - Tumour lysis syndrome [Recovered/Resolved]
  - Capillary leak syndrome [Not Recovered/Not Resolved]
  - Rehabilitation therapy [Unknown]

NARRATIVE: CASE EVENT DATE: 20241201
